FAERS Safety Report 9212842 (Version 1)
Quarter: 2013Q1

REPORT INFORMATION
  Report Type: Spontaneous
  Country: US (occurrence: None)
  Receive Date: 20120822
  Receipt Date: 20120822
  Transmission Date: 20140127
  Serious: Yes (Other)
  Sender: FDA-Public Use
  Company Number: IMP_05774_2012

PATIENT
  Sex: Female

DRUGS (20)
  1. TETRACYCLINE [Suspect]
     Indication: PRODUCT USED FOR UNKNOWN INDICATION
     Dosage: (DF)
  2. NITRO [Concomitant]
  3. ALBUTEROL [Concomitant]
  4. FLONASE [Concomitant]
  5. PROMETHAZINE [Concomitant]
  6. PULMICORT [Concomitant]
  7. ATROVENT [Concomitant]
  8. TYLENOL /00020001/ [Concomitant]
  9. PEPCID AC [Concomitant]
  10. CRESTOR [Concomitant]
  11. LEVOTHYROXINE [Concomitant]
  12. XANAX [Concomitant]
  13. PLAVIX [Concomitant]
  14. IMDUR [Concomitant]
  15. PREMARIN [Concomitant]
  16. TOPROL [Concomitant]
  17. RAMIPRIL [Concomitant]
  18. PROTONIX [Concomitant]
  19. CHLORTHALIDONE [Concomitant]
  20. AMLODIPINE [Concomitant]

REACTIONS (1)
  - Hypersensitivity [None]
